FAERS Safety Report 4839504-6 (Version None)
Quarter: 2005Q4

REPORT INFORMATION
  Report Type: 
  Country: None (occurrence: None)
  Receive Date: 20051129
  Receipt Date: 20051118
  Transmission Date: 20060501
  Serious: Yes (Hospitalization, Disabling)
  Sender: FDA-Public Use
  Company Number: US-MERCK-0511USA03468

PATIENT
  Sex: Male
  Weight: 91 kg

DRUGS (5)
  1. VIOXX [Suspect]
     Indication: SHOULDER PAIN
     Route: 048
     Dates: start: 20011128, end: 20040224
  2. VIOXX [Suspect]
     Indication: PAIN IN EXTREMITY
     Route: 048
     Dates: start: 20011128, end: 20040224
  3. ATENOLOL [Concomitant]
     Route: 048
  4. NORVASC [Concomitant]
     Route: 048
  5. ZOCOR [Concomitant]
     Route: 048

REACTIONS (5)
  - EMOTIONAL DISTRESS [None]
  - FALL [None]
  - JOINT INJURY [None]
  - LIMB INJURY [None]
  - MYOCARDIAL INFARCTION [None]
